FAERS Safety Report 9321785 (Version 4)
Quarter: 2013Q3

REPORT INFORMATION
  Report Type: Spontaneous
  Country: US (occurrence: US)
  Receive Date: 20130531
  Receipt Date: 20130812
  Transmission Date: 20140515
  Serious: Yes (Other)
  Sender: FDA-Public Use
  Company Number: US-009507513-1305USA013393

PATIENT
  Age: 46 Year
  Sex: Female
  Weight: 79.37 kg

DRUGS (2)
  1. PEGINTRON [Suspect]
     Indication: HEPATITIS C
     Dosage: REDIPEN
     Dates: start: 20130513
  2. REBETOL [Suspect]
     Indication: HEPATITIS C
     Dosage: UNK
     Route: 048
     Dates: start: 20130513

REACTIONS (51)
  - Dehydration [Unknown]
  - Eye disorder [Unknown]
  - Vomiting [Unknown]
  - Influenza like illness [Unknown]
  - Nausea [Unknown]
  - Headache [Unknown]
  - Pain [Unknown]
  - Asthenia [Unknown]
  - Insomnia [Unknown]
  - Tremor [Unknown]
  - Myalgia [Unknown]
  - Musculoskeletal disorder [Unknown]
  - Fatigue [Unknown]
  - Nausea [Unknown]
  - Dyspnoea [Unknown]
  - Red blood cell count decreased [Unknown]
  - White blood cell count decreased [Unknown]
  - Asthenia [Unknown]
  - Fatigue [Unknown]
  - Nausea [Unknown]
  - Vomiting [Unknown]
  - Chest pain [Unknown]
  - Dyspnoea [Unknown]
  - Dizziness [Unknown]
  - Back pain [Unknown]
  - Bone pain [Unknown]
  - Migraine [Unknown]
  - Somnolence [Unknown]
  - Thirst [Unknown]
  - Nightmare [Unknown]
  - Insomnia [Unknown]
  - Mental status changes [Unknown]
  - Mood swings [Unknown]
  - Irritability [Unknown]
  - Anger [Unknown]
  - Road traffic accident [Unknown]
  - Musculoskeletal disorder [Unknown]
  - Contusion [Unknown]
  - Electrocardiogram abnormal [Unknown]
  - Abnormal dreams [Unknown]
  - Extrasystoles [Unknown]
  - Nausea [Not Recovered/Not Resolved]
  - Decreased appetite [Unknown]
  - Migraine [Unknown]
  - Frustration [Unknown]
  - Fatigue [Unknown]
  - Crying [Unknown]
  - Pain [Unknown]
  - Pain in extremity [Unknown]
  - Road traffic accident [Unknown]
  - Feeling abnormal [Unknown]
